FAERS Safety Report 8169949-0 (Version None)
Quarter: 2012Q1

REPORT INFORMATION
  Report Type: 
  Country: None (occurrence: None)
  Receive Date: 20120228
  Receipt Date: 20120228
  Transmission Date: 20120608
  Serious: Yes (Death)
  Sender: FDA-Public Use
  Company Number: None

PATIENT
  Sex: Male
  Weight: 77.11 kg

DRUGS (1)
  1. ASACOL [Suspect]
     Indication: COLITIS ULCERATIVE
     Dosage: 800 MG
     Route: 048

REACTIONS (18)
  - CARDIAC FAILURE CONGESTIVE [None]
  - BRAIN NATRIURETIC PEPTIDE INCREASED [None]
  - CARDIAC ARREST [None]
  - MYALGIA [None]
  - PERIPANCREATIC FLUID COLLECTION [None]
  - MYOCARDIAL INFARCTION [None]
  - SINUSITIS [None]
  - ARRHYTHMIA [None]
  - ALLERGIC MYOCARDITIS [None]
  - JUGULAR VEIN DISTENSION [None]
  - WHITE BLOOD CELL COUNT INCREASED [None]
  - BUNDLE BRANCH BLOCK LEFT [None]
  - CARDIOMEGALY [None]
  - ACUTE CORONARY SYNDROME [None]
  - ATELECTASIS [None]
  - DIZZINESS [None]
  - PERICARDIAL EFFUSION [None]
  - BUNDLE BRANCH BLOCK RIGHT [None]
